FAERS Safety Report 14852720 (Version 1)
Quarter: 2018Q2

REPORT INFORMATION
  Report Type: Spontaneous
  Country: US (occurrence: US)
  Receive Date: 20180507
  Receipt Date: 20180507
  Transmission Date: 20180711
  Serious: No
  Sender: FDA-Public Use
  Company Number: US-NEUROCRINE BIOSCIENCES INC.-2018NBI01194

PATIENT
  Age: 72 Year
  Sex: Female
  Weight: 68.1 kg

DRUGS (3)
  1. INGREZZA [Suspect]
     Active Substance: VALBENAZINE
     Indication: TARDIVE DYSKINESIA
     Route: 048
     Dates: start: 20170705, end: 20170711
  2. INGREZZA [Suspect]
     Active Substance: VALBENAZINE
     Dosage: 2 X 40 MG CAPSULES
     Route: 048
     Dates: start: 20170712
  3. WELLBUTRIN [Suspect]
     Active Substance: BUPROPION HYDROCHLORIDE
     Indication: PRODUCT USED FOR UNKNOWN INDICATION

REACTIONS (1)
  - Reduced facial expression [Not Recovered/Not Resolved]

NARRATIVE: CASE EVENT DATE: 201804
